FAERS Safety Report 25030352 (Version 2)
Quarter: 2025Q2

REPORT INFORMATION
  Report Type: Spontaneous
  Country: US (occurrence: US)
  Receive Date: 20250303
  Receipt Date: 20250414
  Transmission Date: 20250716
  Serious: Yes (Hospitalization)
  Sender: AMGEN
  Company Number: US-AMGEN-USASP2025038160

PATIENT
  Age: 75 Year
  Sex: Female

DRUGS (11)
  1. REPATHA [Suspect]
     Active Substance: EVOLOCUMAB
     Indication: Product used for unknown indication
     Route: 058
  2. REPATHA [Suspect]
     Active Substance: EVOLOCUMAB
     Dosage: 140 MILLIGRAM, Q2WK
     Route: 058
  3. NIFEDIPINE [Concomitant]
     Active Substance: NIFEDIPINE
     Indication: Product used for unknown indication
     Route: 065
  4. NIFEDIPINE [Concomitant]
     Active Substance: NIFEDIPINE
     Route: 058
  5. NIFEDIPINE [Concomitant]
     Active Substance: NIFEDIPINE
     Route: 058
  6. RANOLAZINE [Concomitant]
     Active Substance: RANOLAZINE
     Indication: Product used for unknown indication
     Route: 065
  7. RANOLAZINE [Concomitant]
     Active Substance: RANOLAZINE
     Route: 058
  8. RANOLAZINE [Concomitant]
     Active Substance: RANOLAZINE
     Route: 058
  9. LASIX [Concomitant]
     Active Substance: FUROSEMIDE
  10. UNSPECIFIED INGREDIENT [Concomitant]
     Active Substance: UNSPECIFIED INGREDIENT
  11. CAMZYOS [Concomitant]
     Active Substance: MAVACAMTEN

REACTIONS (3)
  - Influenza [Unknown]
  - Incorrect disposal of product [Unknown]
  - Device use error [Unknown]

NARRATIVE: CASE EVENT DATE: 20250201
